FAERS Safety Report 13592745 (Version 2)
Quarter: 2017Q2

REPORT INFORMATION
  Report Type: Spontaneous
  Country: JP (occurrence: JP)
  Receive Date: 20170530
  Receipt Date: 20170531
  Transmission Date: 20170830
  Serious: Yes (Death, Other)
  Sender: FDA-Public Use
  Company Number: PHJP2017JP014073

PATIENT
  Age: 87 Year
  Sex: Female

DRUGS (3)
  1. FILGRASTIM [Concomitant]
     Active Substance: FILGRASTIM
     Indication: APLASTIC ANAEMIA
     Dosage: UNK
     Route: 041
     Dates: start: 201704
  2. NEORAL [Suspect]
     Active Substance: CYCLOSPORINE
     Indication: APLASTIC ANAEMIA
     Dosage: 175 MG (25 MG X 7 CAPSULES), QD
     Route: 048
     Dates: start: 201704
  3. NEORAL [Suspect]
     Active Substance: CYCLOSPORINE
     Dosage: 100 MG (APPROXIMATELY 2 MG/KG), QD
     Route: 048
     Dates: start: 201704

REACTIONS (5)
  - Aplastic anaemia [Fatal]
  - Glomerular filtration rate decreased [Unknown]
  - Renal impairment [Not Recovered/Not Resolved]
  - Product use in unapproved indication [Unknown]
  - Hepatic function abnormal [Not Recovered/Not Resolved]

NARRATIVE: CASE EVENT DATE: 201704
